FAERS Safety Report 5124996-8 (Version None)
Quarter: 2006Q4

REPORT INFORMATION
  Report Type: 
  Country: None (occurrence: None)
  Receive Date: 20061011
  Receipt Date: 20060829
  Transmission Date: 20070319
  Serious: Yes (Hospitalization)
  Sender: FDA-Public Use
  Company Number: ES-GLAXOSMITHKLINE-B0437025A

PATIENT
  Sex: Male

DRUGS (5)
  1. LITHIUM CARBONATE [Suspect]
     Indication: BIPOLAR DISORDER
     Route: 065
  2. CARBAMAZEPINE [Suspect]
     Route: 065
  3. VALPROIC ACID [Suspect]
     Route: 065
  4. CHLORIMIPRAMINE [Suspect]
     Route: 065
  5. NORTRIPTYLINE HCL [Suspect]
     Route: 065

REACTIONS (8)
  - CONVULSION [None]
  - DELIRIUM [None]
  - DRUG INTERACTION [None]
  - DRUG TOXICITY [None]
  - HYPONATRAEMIA [None]
  - INAPPROPRIATE ANTIDIURETIC HORMONE SECRETION [None]
  - LOSS OF CONSCIOUSNESS [None]
  - NEPHROTIC SYNDROME [None]
